FAERS Safety Report 10422036 (Version 1)
Quarter: 2014Q3

REPORT INFORMATION
  Report Type: Spontaneous
  Country: US (occurrence: US)
  Receive Date: 20140901
  Receipt Date: 20140901
  Transmission Date: 20150326
  Serious: No
  Sender: FDA-Public Use
  Company Number: US-SANOFI-AVENTIS-2013SA092680

PATIENT
  Age: 69 Year
  Sex: Female

DRUGS (1)
  1. IRBESARTAN WINTHROP [Suspect]
     Active Substance: IRBESARTAN
     Indication: HYPERTENSION
     Dosage: PRODUCT STARTED ABOUT FOUR MONTHS AGO. DOSE: ONE TABLET IN MORNING AND ONE-HALF TABLET AT NIGHT.
     Route: 048

REACTIONS (2)
  - Arthralgia [Unknown]
  - Dizziness [Unknown]
